FAERS Safety Report 22601414 (Version 1)
Quarter: 2023Q2

REPORT INFORMATION
  Report Type: Spontaneous
  Country: US (occurrence: US)
  Receive Date: 20230614
  Receipt Date: 20230614
  Transmission Date: 20230722
  Serious: No
  Sender: FDA-Public Use
  Company Number: US-RIGEL PHARMACEUTICALS, INC.- 2023FOS000339

PATIENT
  Sex: Female
  Weight: 73.741 kg

DRUGS (2)
  1. TAVALISSE [Suspect]
     Active Substance: FOSTAMATINIB
     Indication: Immune thrombocytopenia
     Dosage: 100 MILLIGRAM, BID
     Route: 048
     Dates: start: 20230308, end: 2023
  2. TAVALISSE [Suspect]
     Active Substance: FOSTAMATINIB
     Dosage: 150 MG, BID
     Route: 048
     Dates: start: 2023

REACTIONS (9)
  - Fall [Unknown]
  - Eye contusion [Recovering/Resolving]
  - Eye swelling [Recovering/Resolving]
  - Platelet count [Recovering/Resolving]
  - Rib fracture [Not Recovered/Not Resolved]
  - Musculoskeletal chest pain [Unknown]
  - Drug hypersensitivity [Unknown]
  - Skin discolouration [Unknown]
  - Haematoma [Unknown]

NARRATIVE: CASE EVENT DATE: 20230101
